FAERS Safety Report 23193073 (Version 1)
Quarter: 2023Q4

REPORT INFORMATION
  Report Type: Report from Study
  Country: ES (occurrence: ES)
  Receive Date: 20231116
  Receipt Date: 20231116
  Transmission Date: 20240109
  Serious: Yes (Hospitalization, Other)
  Sender: FDA-Public Use
  Company Number: ES-BRISTOL-MYERS SQUIBB COMPANY-2023-164114

PATIENT
  Age: 78 Year
  Sex: Male
  Weight: 96 kg

DRUGS (33)
  1. PACLITAXEL [Suspect]
     Active Substance: PACLITAXEL
     Indication: Ductal adenocarcinoma of pancreas
     Dosage: ON DAYS 1 8 AND 15, ONCE
     Route: 042
     Dates: start: 20230703, end: 20230703
  2. PACLITAXEL [Suspect]
     Active Substance: PACLITAXEL
     Dosage: ON DAYS 1 8 AND 15, ONCE
     Route: 042
     Dates: start: 20230711, end: 20230711
  3. PACLITAXEL [Suspect]
     Active Substance: PACLITAXEL
     Dosage: ON DAYS 1 8 AND 15, ONCE
     Route: 042
     Dates: start: 20230731, end: 20230731
  4. PACLITAXEL [Suspect]
     Active Substance: PACLITAXEL
     Dosage: ON DAYS 1 8 AND 15, ONCE
     Route: 042
     Dates: start: 20230807, end: 20230807
  5. PACLITAXEL [Suspect]
     Active Substance: PACLITAXEL
     Dosage: ON DAYS 1 8 AND 15, ONCE
     Route: 042
     Dates: start: 20230829, end: 20230829
  6. PACLITAXEL [Suspect]
     Active Substance: PACLITAXEL
     Dosage: ON DAYS 1 8 AND 15, ONCE
     Route: 042
     Dates: start: 20230905, end: 20230905
  7. PACLITAXEL [Suspect]
     Active Substance: PACLITAXEL
     Dosage: ON DAYS 1 8 AND 15, ONCE
     Route: 042
     Dates: start: 20230912, end: 20230912
  8. PACLITAXEL [Suspect]
     Active Substance: PACLITAXEL
     Dosage: ON DAYS 1 8 AND 15, ONCE
     Route: 042
     Dates: start: 20230926, end: 20230926
  9. GEMCITABINE [Suspect]
     Active Substance: GEMCITABINE
     Indication: Ductal adenocarcinoma of pancreas
     Dosage: DOSE GIVEN ON DAYS 1,8 AND 15 ONCE
     Route: 042
     Dates: start: 20230703, end: 20230703
  10. GEMCITABINE [Suspect]
     Active Substance: GEMCITABINE
     Dosage: DOSE GIVEN ON DAYS 1,8 AND 15 ONCE
     Route: 042
     Dates: start: 20230711, end: 20230711
  11. GEMCITABINE [Suspect]
     Active Substance: GEMCITABINE
     Dosage: DOSE GIVEN ON DAYS 1,8 AND 15 ONCE
     Route: 042
     Dates: start: 20230731, end: 20230731
  12. GEMCITABINE [Suspect]
     Active Substance: GEMCITABINE
     Dosage: DOSE GIVEN ON DAYS 1,8 AND 15 ONCE
     Route: 042
     Dates: start: 20230807, end: 20230807
  13. GEMCITABINE [Suspect]
     Active Substance: GEMCITABINE
     Dosage: DOSE GIVEN ON DAYS 1,8 AND 15 ONCE
     Route: 042
     Dates: start: 20230829, end: 20230829
  14. GEMCITABINE [Suspect]
     Active Substance: GEMCITABINE
     Dosage: DOSE GIVEN ON DAYS 1,8 AND 15 ONCE
     Route: 042
     Dates: start: 20230905, end: 20230905
  15. GEMCITABINE [Suspect]
     Active Substance: GEMCITABINE
     Dosage: DOSE GIVEN ON DAYS 1,8 AND 15 ONCE
     Route: 042
     Dates: start: 20230912, end: 20230912
  16. GEMCITABINE [Suspect]
     Active Substance: GEMCITABINE
     Dosage: DOSE GIVEN ON DAYS 1,8 AND 15 ONCE
     Route: 042
     Dates: start: 20230926, end: 20230926
  17. GEMCITABINE [Suspect]
     Active Substance: GEMCITABINE
     Dosage: DOSE GIVEN ON DAYS 1,8 AND 15 ONCE
     Route: 042
     Dates: start: 20231009, end: 20231009
  18. AMLODIPINE [Concomitant]
     Active Substance: AMLODIPINE BESYLATE
     Indication: Hypertension
     Route: 048
  19. CARVEDILOL [Concomitant]
     Active Substance: CARVEDILOL
     Indication: Hypertension
     Route: 048
  20. FUROSEMIDE [Concomitant]
     Active Substance: FUROSEMIDE
     Indication: Hypertension
     Route: 042
     Dates: start: 20231023
  21. HYDROCHLOROTHIAZIDE [Concomitant]
     Active Substance: HYDROCHLOROTHIAZIDE
     Indication: Hypertension
     Route: 048
  22. LANSOPRAZOLE [Concomitant]
     Active Substance: LANSOPRAZOLE
     Indication: Gastrooesophageal reflux disease
     Route: 048
  23. MIRTAZAPINE [Concomitant]
     Active Substance: MIRTAZAPINE
     Indication: Depression
     Route: 048
  24. MORPHINE [Concomitant]
     Active Substance: MORPHINE
     Indication: Pain prophylaxis
     Route: 048
     Dates: start: 20230704
  25. OLMESARTAN MEDOXOMIL [Concomitant]
     Active Substance: OLMESARTAN MEDOXOMIL
     Indication: Hypertension
     Route: 048
  26. PANTOPRAZOLE [Concomitant]
     Active Substance: PANTOPRAZOLE
     Indication: Prophylaxis
     Route: 048
     Dates: start: 20231023
  27. ROSUVASTATIN [Concomitant]
     Active Substance: ROSUVASTATIN
     Indication: Dyslipidaemia
     Route: 048
  28. ACETAMINOPHEN [Concomitant]
     Active Substance: ACETAMINOPHEN
     Indication: Pain prophylaxis
     Route: 048
     Dates: start: 20230630
  29. ONDANSETRON [Concomitant]
     Active Substance: ONDANSETRON
     Indication: Premedication
     Dosage: ONCE
     Route: 042
     Dates: start: 20230925, end: 20230925
  30. POLARAMINE [Concomitant]
     Active Substance: DEXCHLORPHENIRAMINE MALEATE
     Indication: Premedication
     Dosage: ONCE
     Route: 042
     Dates: start: 20230925, end: 20230925
  31. POLARAMINE [Concomitant]
     Active Substance: DEXCHLORPHENIRAMINE MALEATE
     Dosage: ONCE
     Route: 042
     Dates: start: 20231009, end: 20231009
  32. DEXAMETHASONE [Concomitant]
     Active Substance: DEXAMETHASONE
     Indication: Premedication
     Dosage: ONCE
     Route: 042
     Dates: start: 20231009, end: 20231009
  33. DEXAMETHASONE [Concomitant]
     Active Substance: DEXAMETHASONE
     Dosage: ONCE
     Route: 042
     Dates: start: 20230925, end: 20230925

REACTIONS (1)
  - Myocarditis [Recovering/Resolving]

NARRATIVE: CASE EVENT DATE: 20231023
